FAERS Safety Report 9983195 (Version 5)
Quarter: 2014Q2

REPORT INFORMATION
  Report Type: Spontaneous
  Country: GB (occurrence: GB)
  Receive Date: 20140307
  Receipt Date: 20140411
  Transmission Date: 20141212
  Serious: Yes (Life-Threatening, Other)
  Sender: FDA-Public Use
  Company Number: PHFR2014GB001931

PATIENT
  Sex: Female

DRUGS (5)
  1. FEMARA [Suspect]
     Dosage: UNK UKN, UNK
  2. FEMARA [Suspect]
     Dosage: UNK UKN, UNK
  3. FEMARA [Suspect]
     Dosage: EVERY 3 DAYS
  4. VALIUM [Concomitant]
     Dosage: UNK UKN, UNK
  5. CO-CODAMOL [Concomitant]
     Dosage: UNK UKN, UNK

REACTIONS (32)
  - Feeling abnormal [Unknown]
  - Drug hypersensitivity [Unknown]
  - Lymphoedema [Unknown]
  - Neoplasm malignant [Unknown]
  - Vaginal haemorrhage [Unknown]
  - Urinary tract infection [Unknown]
  - Inflammation [Unknown]
  - Back pain [Unknown]
  - Immunodeficiency [Unknown]
  - Screaming [Unknown]
  - Emotional distress [Unknown]
  - Movement disorder [Unknown]
  - Tremor [Unknown]
  - Fall [Unknown]
  - Nervous system disorder [Unknown]
  - Gait disturbance [Unknown]
  - Skin disorder [Unknown]
  - Gastric disorder [Unknown]
  - Pain [Unknown]
  - Lymph node pain [Unknown]
  - Agitation [Unknown]
  - Abdominal discomfort [Unknown]
  - Hypersensitivity [Unknown]
  - Insomnia [Unknown]
  - Nausea [Unknown]
  - Urticaria [Unknown]
  - Vomiting [Unknown]
  - Weight decreased [Unknown]
  - Diarrhoea [Unknown]
  - Malaise [Unknown]
  - Dyspepsia [Unknown]
  - Decreased appetite [Unknown]
